FAERS Safety Report 11149026 (Version 2)
Quarter: 2015Q2

REPORT INFORMATION
  Report Type: Spontaneous
  Country: GB (occurrence: GB)
  Receive Date: 20150529
  Receipt Date: 20150622
  Transmission Date: 20150821
  Serious: Yes (Other)
  Sender: FDA-Public Use
  Company Number: GB-SA-2015SA071712

PATIENT
  Age: 17 Day
  Sex: Female
  Weight: .62 kg

DRUGS (9)
  1. NEOPROFEN [Suspect]
     Active Substance: IBUPROFEN LYSINE
     Indication: PATENT DUCTUS ARTERIOSUS
     Route: 041
     Dates: start: 20150325, end: 20150327
  2. VANCOMYCIN [Suspect]
     Active Substance: VANCOMYCIN
     Indication: INFECTION
     Route: 065
     Dates: start: 20150329, end: 20150408
  3. MORPHINE [Concomitant]
     Active Substance: MORPHINE
     Indication: SEDATION
     Dates: start: 20150314
  4. NEOPROFEN [Suspect]
     Active Substance: IBUPROFEN LYSINE
     Indication: PATENT DUCTUS ARTERIOSUS
     Route: 041
     Dates: start: 20150324, end: 20150324
  5. NEOPROFEN [Suspect]
     Active Substance: IBUPROFEN LYSINE
     Indication: PATENT DUCTUS ARTERIOSUS
     Route: 041
     Dates: start: 20150331, end: 20150331
  6. NEOPROFEN [Suspect]
     Active Substance: IBUPROFEN LYSINE
     Indication: PATENT DUCTUS ARTERIOSUS
     Route: 041
     Dates: start: 20150330, end: 20150330
  7. CEFOTAXIME [Suspect]
     Active Substance: CEFOTAXIME\CEFOTAXIME SODIUM
     Indication: INFECTION
     Route: 065
     Dates: start: 20150320, end: 20150403
  8. FLUCONAZOLE. [Concomitant]
     Active Substance: FLUCONAZOLE
     Indication: INFECTION PROPHYLAXIS
     Dates: start: 20150314, end: 20150405
  9. CAFFEINE. [Concomitant]
     Active Substance: CAFFEINE
     Indication: APNOEA
     Dates: start: 20150314

REACTIONS (2)
  - Hypotension [Recovered/Resolved]
  - Renal failure [Recovered/Resolved]

NARRATIVE: CASE EVENT DATE: 2015
